FAERS Safety Report 7400788-1 (Version None)
Quarter: 2011Q2

REPORT INFORMATION
  Report Type: 
  Country: None (occurrence: None)
  Receive Date: 20110407
  Receipt Date: 20110401
  Transmission Date: 20111010
  Serious: Yes (Hospitalization)
  Sender: FDA-Public Use
  Company Number: B0710221A

PATIENT
  Sex: Female

DRUGS (6)
  1. CHLORAMINOPHENE [Suspect]
     Indication: LYMPHOMA
     Dosage: 4MG PER DAY
     Route: 048
     Dates: start: 20110303, end: 20110306
  2. DIGOXIN [Concomitant]
  3. LEVOTHYROX [Concomitant]
     Indication: HYPOTHYROIDISM
     Dosage: 50MCG PER DAY
  4. PREVISCAN [Concomitant]
  5. MABTHERA [Suspect]
     Indication: LYMPHOMA
     Dosage: 500MG PER DAY
     Route: 042
     Dates: start: 20110303, end: 20110303
  6. ZELITREX [Suspect]
     Dosage: 500MG PER DAY
     Route: 048
     Dates: start: 20110303

REACTIONS (5)
  - BRAIN NATRIURETIC PEPTIDE INCREASED [None]
  - SYNCOPE [None]
  - HYPOKALAEMIA [None]
  - TORSADE DE POINTES [None]
  - DYSPNOEA [None]
